FAERS Safety Report 16372674 (Version 3)
Quarter: 2019Q3

REPORT INFORMATION
  Report Type: Report from Study
  Country: CA (occurrence: CA)
  Receive Date: 20190530
  Receipt Date: 20190923
  Transmission Date: 20191004
  Serious: Yes (Other)
  Sender: FDA-Public Use
  Company Number: CA-OTSUKA-2019_021280

PATIENT
  Age: 64 Year
  Sex: Female
  Weight: 72.4 kg

DRUGS (8)
  1. BUSULFAN. [Suspect]
     Active Substance: BUSULFAN
     Indication: STEM CELL TRANSPLANT
     Dosage: 210 MG, Q 24 HRS (QD)
     Route: 042
     Dates: start: 20140923, end: 20140925
  2. ELIQUIS [Concomitant]
     Active Substance: APIXABAN
     Indication: PRODUCT USED FOR UNKNOWN INDICATION
     Dosage: 5 MG, QD
     Route: 048
  3. CRESTOR [Concomitant]
     Active Substance: ROSUVASTATIN CALCIUM
     Indication: PRODUCT USED FOR UNKNOWN INDICATION
     Dosage: 5 MG, QD
     Route: 048
  4. LENALIDOMIDE [Suspect]
     Active Substance: LENALIDOMIDE
     Indication: STEM CELL TRANSPLANT
     Dosage: 5 MG, QD
     Route: 048
     Dates: start: 20150113
  5. ACICLOVIR [Concomitant]
     Active Substance: ACYCLOVIR
     Indication: PRODUCT USED FOR UNKNOWN INDICATION
     Dosage: 800 MG, QD
     Route: 048
  6. REVLIMID [Concomitant]
     Active Substance: LENALIDOMIDE
     Indication: PRODUCT USED FOR UNKNOWN INDICATION
     Dosage: 5 MG, QD
     Route: 048
  7. AMLODIPINE [Concomitant]
     Active Substance: AMLODIPINE BESYLATE
     Indication: PRODUCT USED FOR UNKNOWN INDICATION
     Dosage: 10 MG, QD
     Route: 048
  8. MELPHALAN. [Suspect]
     Active Substance: MELPHALAN
     Indication: STEM CELL TRANSPLANT
     Dosage: 250 MG, ONCE
     Route: 042
     Dates: start: 20140926, end: 20140926

REACTIONS (1)
  - Squamous cell carcinoma [Recovered/Resolved]

NARRATIVE: CASE EVENT DATE: 20190401
